FAERS Safety Report 23022288 (Version 1)
Quarter: 2023Q4

REPORT INFORMATION
  Report Type: Report from Study
  Country: PE (occurrence: PE)
  Receive Date: 20231003
  Receipt Date: 20231003
  Transmission Date: 20240110
  Serious: Yes (Other)
  Sender: FDA-Public Use
  Company Number: PE-AstraZeneca-2023A221055

PATIENT
  Age: 89 Day
  Sex: Male
  Weight: 2.8 kg

DRUGS (3)
  1. SYNAGIS [Suspect]
     Active Substance: PALIVIZUMAB
     Indication: Antiviral prophylaxis
     Dosage: MONTHLY
     Route: 058
     Dates: start: 20230731
  2. SYNAGIS [Suspect]
     Active Substance: PALIVIZUMAB
     Route: 058
     Dates: start: 20230828
  3. SYNAGIS [Suspect]
     Active Substance: PALIVIZUMAB
     Route: 058

REACTIONS (1)
  - Thrombosis [Recovering/Resolving]

NARRATIVE: CASE EVENT DATE: 20230801
